FAERS Safety Report 15926080 (Version 2)
Quarter: 2019Q1

REPORT INFORMATION
  Report Type: Spontaneous
  Country: US (occurrence: US)
  Receive Date: 20190205
  Receipt Date: 20190219
  Transmission Date: 20190417
  Serious: No
  Sender: FDA-Public Use
  Company Number: US-ALLERGAN-1842176US

PATIENT
  Age: 29 Year
  Sex: Female

DRUGS (1)
  1. BOTOX COSMETIC [Suspect]
     Active Substance: ONABOTULINUMTOXINA
     Indication: SKIN WRINKLING
     Dosage: 100 UNITS, SINGLE
     Route: 023
     Dates: start: 20180518, end: 20180518

REACTIONS (6)
  - Drug ineffective [Unknown]
  - Poor quality product administered [Unknown]
  - Product quality issue [Unknown]
  - Product storage error [Unknown]
  - Product preparation error [Unknown]
  - Product administered at inappropriate site [Unknown]

NARRATIVE: CASE EVENT DATE: 20180518
